FAERS Safety Report 12686917 (Version 5)
Quarter: 2018Q1

REPORT INFORMATION
  Report Type: Report from Study
  Country: GB (occurrence: GB)
  Receive Date: 20160826
  Receipt Date: 20180112
  Transmission Date: 20180508
  Serious: Yes (Death, Hospitalization, Other)
  Sender: FDA-Public Use
  Company Number: GB-AMGEN-GBRSL2016109337

PATIENT
  Age: 72 Year
  Sex: Male

DRUGS (3)
  1. ARANESP [Suspect]
     Active Substance: DARBEPOETIN ALFA
     Dosage: 100 MUG, UNK
     Route: 065
  2. ARANESP [Suspect]
     Active Substance: DARBEPOETIN ALFA
     Indication: PRODUCT USED FOR UNKNOWN INDICATION
     Dosage: 20 MUG, UNK
     Route: 065
  3. ARANESP [Suspect]
     Active Substance: DARBEPOETIN ALFA
     Dosage: 80 MUG, UNK
     Route: 065

REACTIONS (5)
  - Blood potassium increased [Unknown]
  - Peritoneal dialysis [Recovered/Resolved]
  - Death [Fatal]
  - Device dislocation [Unknown]
  - Haemodialysis [Not Recovered/Not Resolved]

NARRATIVE: CASE EVENT DATE: 20161024
